FAERS Safety Report 15626393 (Version 1)
Quarter: 2018Q4

REPORT INFORMATION
  Report Type: Report from Study
  Country: US (occurrence: US)
  Receive Date: 20181116
  Receipt Date: 20181116
  Transmission Date: 20190205
  Serious: Yes (Death, Disabling, Other)
  Sender: FDA-Public Use
  Company Number: US-GILEAD-2018-0374848

PATIENT
  Age: 85 Year
  Sex: Male

DRUGS (1)
  1. RANOLAZINE. [Suspect]
     Active Substance: RANOLAZINE
     Indication: ANGINA PECTORIS
     Dosage: 1000 MG, BID
     Route: 048
     Dates: start: 201611

REACTIONS (4)
  - Pneumonia [Unknown]
  - Fall [Unknown]
  - Spinal fracture [Unknown]
  - Death [Fatal]

NARRATIVE: CASE EVENT DATE: 201810
